FAERS Safety Report 6638703-0 (Version None)
Quarter: 2010Q1

REPORT INFORMATION
  Report Type: 
  Country: None (occurrence: None)
  Receive Date: 20100316
  Receipt Date: 20100316
  Transmission Date: 20100710
  Serious: Yes (Other)
  Sender: FDA-Public Use
  Company Number: None

PATIENT
  Age: 25 Year
  Sex: Female
  Weight: 56.6996 kg

DRUGS (1)
  1. MAGNESIUM SULFATE [Suspect]
     Indication: PREMATURE LABOUR
     Dosage: 2 GRAMS PER HOUR 5 DAYS IV DRIP
     Route: 041
     Dates: start: 20090922, end: 20090927

REACTIONS (27)
  - ASTHENIA [None]
  - CHEST DISCOMFORT [None]
  - CHEST PAIN [None]
  - DIZZINESS [None]
  - DRUG EXPOSURE DURING PREGNANCY [None]
  - DYSARTHRIA [None]
  - DYSPNOEA [None]
  - EMOTIONAL DISORDER [None]
  - FEELING ABNORMAL [None]
  - FLUSHING [None]
  - HEADACHE [None]
  - HEART RATE IRREGULAR [None]
  - HYPERHIDROSIS [None]
  - HYPOAESTHESIA ORAL [None]
  - HYPOTENSION [None]
  - INTENTIONAL DRUG MISUSE [None]
  - LIP SWELLING [None]
  - MUSCULAR WEAKNESS [None]
  - NAUSEA [None]
  - OEDEMA MOUTH [None]
  - PRURITUS [None]
  - PULMONARY OEDEMA [None]
  - RASH [None]
  - SOMNOLENCE [None]
  - SWOLLEN TONGUE [None]
  - URTICARIA [None]
  - VISION BLURRED [None]
